FAERS Safety Report 21794326 (Version 1)
Quarter: 2022Q4

REPORT INFORMATION
  Report Type: Spontaneous
  Country: US (occurrence: None)
  Receive Date: 20221228
  Receipt Date: 20221228
  Transmission Date: 20230113
  Serious: Yes (Other)
  Sender: FDA-Public Use
  Company Number: None

PATIENT
  Age: 64 Year
  Sex: Male
  Weight: 93.15 kg

DRUGS (1)
  1. CABENUVA [Suspect]
     Active Substance: CABOTEGRAVIR\RILPIVIRINE
     Indication: HIV infection
     Dosage: OTHER FREQUENCY : MONTHLY;?
     Route: 030
     Dates: start: 20221128

REACTIONS (4)
  - Peripheral swelling [None]
  - Pustule [None]
  - Abscess drainage [None]
  - Pain [None]

NARRATIVE: CASE EVENT DATE: 20221128
